FAERS Safety Report 10487085 (Version 1)
Quarter: 2014Q4

REPORT INFORMATION
  Report Type: Report from Study
  Country: BR (occurrence: BR)
  Receive Date: 20141001
  Receipt Date: 20141001
  Transmission Date: 20150528
  Serious: Yes (Hospitalization, Other)
  Sender: FDA-Public Use
  Company Number: BR-ABBVIE-14K-020-1288371-00

PATIENT
  Age: 61 Year
  Sex: Female
  Weight: 102 kg

DRUGS (6)
  1. UNSPECIFIED CORTICOID [Suspect]
     Active Substance: UNSPECIFIED INGREDIENT
     Indication: RHEUMATOID ARTHRITIS
  2. HUMIRA [Suspect]
     Active Substance: ADALIMUMAB
     Indication: RHEUMATOID ARTHRITIS
     Dates: start: 20120405, end: 20131201
  3. PREDNISONE. [Concomitant]
     Active Substance: PREDNISONE
     Indication: RHEUMATIC DISORDER
     Dates: start: 2013
  4. PLAQUINOL [Concomitant]
     Active Substance: HYDROXYCHLOROQUINE SULFATE
     Indication: RHEUMATIC DISORDER
     Dates: start: 2013
  5. ADEROGIL D3 [Concomitant]
     Indication: PRODUCT USED FOR UNKNOWN INDICATION
     Dates: start: 201406
  6. LEFLUNOMIDE. [Concomitant]
     Active Substance: LEFLUNOMIDE
     Indication: RHEUMATIC DISORDER
     Route: 048
     Dates: start: 201408

REACTIONS (9)
  - Thyroid disorder [Not Recovered/Not Resolved]
  - Arrhythmia [Unknown]
  - Syncope [Recovered/Resolved]
  - Lipomatous hypertrophy of the interatrial septum [Unknown]
  - Blood pressure abnormal [Unknown]
  - Malaise [Recovered/Resolved]
  - Lung infection [Not Recovered/Not Resolved]
  - Pulmonary hypertension [Unknown]
  - Pneumonia [Not Recovered/Not Resolved]

NARRATIVE: CASE EVENT DATE: 20130307
